FAERS Safety Report 7551898-X (Version None)
Quarter: 2011Q2

REPORT INFORMATION
  Report Type: 
  Country: None (occurrence: None)
  Receive Date: 20110616
  Receipt Date: 20110606
  Transmission Date: 20111010
  Serious: Yes (Death, Other)
  Sender: FDA-Public Use
  Company Number: US-BAYER-201041788NA

PATIENT
  Age: 68 Year
  Sex: Male

DRUGS (7)
  1. LISINOPRIL [Concomitant]
  2. PREDNISONE [Concomitant]
  3. PANTOPRAZOLE [Concomitant]
  4. METOPROLOL [Concomitant]
  5. FUROSEMIDE [Concomitant]
  6. TRASYLOL [Suspect]
     Indication: PRODUCT USED FOR UNKNOWN INDICATION
     Route: 042
     Dates: start: 20041128
  7. RAMIPRIL [Concomitant]

REACTIONS (11)
  - RENAL IMPAIRMENT [None]
  - DEATH [None]
  - RENAL FAILURE [None]
  - RENAL INJURY [None]
  - PAIN [None]
  - MULTI-ORGAN FAILURE [None]
  - EMOTIONAL DISTRESS [None]
  - ANXIETY [None]
  - UNEVALUABLE EVENT [None]
  - FEAR [None]
  - STRESS [None]
